FAERS Safety Report 8835628 (Version 2)
Quarter: 2012Q4

REPORT INFORMATION
  Report Type: 
  Country: US (occurrence: US)
  Receive Date: 20121011
  Receipt Date: 20121022
  Transmission Date: 20130627
  Serious: Yes (Life-Threatening, Hospitalization, Other)
  Sender: FDA-Public Use
  Company Number: US-ACTELION-A-US2012-69121

PATIENT
  Age: 61 Year
  Sex: Male

DRUGS (3)
  1. TRACLEER [Suspect]
     Indication: PULMONARY ARTERIAL HYPERTENSION
     Dosage: UNK
     Route: 048
  2. FLOLAN [Concomitant]
  3. ASPIRIN [Concomitant]

REACTIONS (4)
  - Sepsis [Recovered/Resolved]
  - Catheter site infection [Recovered/Resolved]
  - Central venous catheter removal [Recovered/Resolved]
  - Central venous catheterisation [Recovered/Resolved]
